FAERS Safety Report 4837664-4 (Version None)
Quarter: 2005Q4

REPORT INFORMATION
  Report Type: 
  Country: None (occurrence: None)
  Receive Date: 20051128
  Receipt Date: 20051004
  Transmission Date: 20060501
  Serious: Yes (Hospitalization)
  Sender: FDA-Public Use
  Company Number: US-MERCK-0510USA02220

PATIENT
  Age: 76 Year
  Sex: Female
  Weight: 83 kg

DRUGS (16)
  1. VIOXX [Suspect]
     Indication: ARTHRITIS
     Route: 048
     Dates: start: 20001114, end: 20040921
  2. ASPIRIN [Concomitant]
     Route: 065
  3. LIPITOR [Concomitant]
     Route: 065
  4. PRILOSEC [Concomitant]
     Route: 065
  5. CELEBREX [Concomitant]
     Route: 065
  6. SYNTHROID [Concomitant]
     Route: 065
  7. HYDROCHLOROTHIAZIDE [Concomitant]
     Route: 065
  8. ALTACE [Concomitant]
     Route: 065
  9. BELLADONNA [Concomitant]
     Route: 065
  10. DETROL LA [Concomitant]
     Route: 065
  11. NEXIUM [Concomitant]
     Route: 065
  12. PREDNISOLONE [Concomitant]
     Route: 065
  13. METOCLOPRAMIDE [Concomitant]
     Route: 065
  14. ZITHROMAX [Concomitant]
     Route: 065
  15. CRESTOR [Concomitant]
     Route: 065
  16. LEVOTHYROXINE SODIUM [Concomitant]
     Route: 065

REACTIONS (5)
  - CHEST PAIN [None]
  - DYSPNOEA PAROXYSMAL NOCTURNAL [None]
  - LABYRINTHITIS [None]
  - LACUNAR INFARCTION [None]
  - VERTIGO [None]
